FAERS Safety Report 11852379 (Version 3)
Quarter: 2018Q2

REPORT INFORMATION
  Report Type: Spontaneous
  Country: US (occurrence: US)
  Receive Date: 20151218
  Receipt Date: 20180417
  Transmission Date: 20180711
  Serious: Yes (Hospitalization, Other)
  Sender: FDA-Public Use
  Company Number: US-DSJP-DSU-2015-131716

PATIENT

DRUGS (4)
  1. METROPROLOL [Concomitant]
     Active Substance: METOPROLOL
     Indication: HYPERTENSION
     Dosage: 100
     Route: 065
     Dates: start: 2007
  2. BABY ASPIRIN [Concomitant]
     Active Substance: ASPIRIN
     Indication: MYOCARDIAL INFARCTION
     Dosage: 81 MG, UNK
     Route: 065
     Dates: start: 2008, end: 2014
  3. GLUCOSAMINE + CHONDROITIN          /01430901/ [Concomitant]
     Indication: PRODUCT USED FOR UNKNOWN INDICATION
     Dosage: 500 MG, UNK
     Route: 065
  4. BENICAR HCT [Suspect]
     Active Substance: HYDROCHLOROTHIAZIDE\OLMESARTAN MEDOXOMIL
     Indication: HYPERTENSION
     Dosage: 20/12.5
     Dates: start: 20110118

REACTIONS (9)
  - Oesophagitis [Not Recovered/Not Resolved]
  - Feeding disorder [Unknown]
  - Sprue-like enteropathy [Unknown]
  - Crohn^s disease [Unknown]
  - Musculoskeletal disorder [Unknown]
  - Weight increased [Unknown]
  - Gastrointestinal ulcer [Unknown]
  - Hiatus hernia [Unknown]
  - Alopecia [Unknown]

NARRATIVE: CASE EVENT DATE: 201208
